FAERS Safety Report 19406604 (Version 6)
Quarter: 2023Q4

REPORT INFORMATION
  Report Type: Spontaneous
  Country: US (occurrence: US)
  Receive Date: 20210611
  Receipt Date: 20231211
  Transmission Date: 20240110
  Serious: Yes (Other)
  Sender: FDA-Public Use
  Company Number: US-SA-SAC20210610000441

PATIENT
  Age: 62 Year
  Sex: Female
  Weight: 74.8 kg

DRUGS (16)
  1. CERDELGA [Suspect]
     Active Substance: ELIGLUSTAT
     Indication: Bone cancer
     Dosage: 84 MG, BID
     Route: 048
     Dates: start: 20210301
  2. LUTEIN [Concomitant]
     Active Substance: LUTEIN
  3. AMOXICILLIN [Concomitant]
     Active Substance: AMOXICILLIN
  4. PROMETHAZINE [Concomitant]
     Active Substance: PROMETHAZINE HYDROCHLORIDE
  5. VITAMIN D3 [Concomitant]
     Active Substance: CHOLECALCIFEROL
  6. OMEPRAZOLE [Concomitant]
     Active Substance: OMEPRAZOLE
  7. HYDROCHLOROTHIAZIDE [Concomitant]
     Active Substance: HYDROCHLOROTHIAZIDE
  8. SCOPOLAMINE [Concomitant]
     Active Substance: SCOPOLAMINE
  9. OXYBUTYNIN [Concomitant]
     Active Substance: OXYBUTYNIN
  10. MIRTAZAPINE [Concomitant]
     Active Substance: MIRTAZAPINE
  11. WELLBUTRIN [Concomitant]
     Active Substance: BUPROPION HYDROCHLORIDE
  12. NEOMYCIN SULFATE\POLYMYXIN B SULFATE [Concomitant]
     Active Substance: NEOMYCIN SULFATE\POLYMYXIN B SULFATE
  13. BACTRIM [Concomitant]
     Active Substance: SULFAMETHOXAZOLE\TRIMETHOPRIM
  14. LUTEINUM [Concomitant]
     Active Substance: SUS SCROFA CORPUS LUTEUM
  15. EQUATE VISION FORMULA WITH LUTEIN [Concomitant]
  16. MECLIZINE HYDROCHLORIDE [Concomitant]
     Active Substance: MECLIZINE HYDROCHLORIDE

REACTIONS (4)
  - Brain neoplasm [Unknown]
  - Brain neoplasm malignant [Unknown]
  - Dyscalculia [Unknown]
  - Product use in unapproved indication [Unknown]

NARRATIVE: CASE EVENT DATE: 20210301
